FAERS Safety Report 23634057 (Version 2)
Quarter: 2025Q4

REPORT INFORMATION
  Report Type: Spontaneous
  Country: EU (occurrence: EU)
  Receive Date: 20240314
  Receipt Date: 20251007
  Transmission Date: 20260118
  Serious: Yes (Hospitalization)
  Sender: MYLAN
  Company Number: None

PATIENT
  Age: 70 Year
  Sex: Female
  Weight: 63 kg

DRUGS (20)
  1. PREDNISONE [Suspect]
     Active Substance: PREDNISONE
     Indication: B-cell lymphoma
     Dosage: 60 MILLIGRAM, QD
     Dates: start: 20231204, end: 20231207
  2. PREDNISONE [Suspect]
     Active Substance: PREDNISONE
     Dosage: 60 MILLIGRAM, QD
     Route: 048
     Dates: start: 20231204, end: 20231207
  3. PREDNISONE [Suspect]
     Active Substance: PREDNISONE
     Dosage: 60 MILLIGRAM, QD
     Route: 048
     Dates: start: 20231204, end: 20231207
  4. PREDNISONE [Suspect]
     Active Substance: PREDNISONE
     Dosage: 60 MILLIGRAM, QD
     Dates: start: 20231204, end: 20231207
  5. MABTHERA [Suspect]
     Active Substance: RITUXIMAB
     Indication: B-cell lymphoma
     Dosage: 1 DOSAGE FORM, 1 TOTAL
     Dates: start: 20231204, end: 20231204
  6. MABTHERA [Suspect]
     Active Substance: RITUXIMAB
     Dosage: 1 DOSAGE FORM, 1 TOTAL
     Route: 058
     Dates: start: 20231204, end: 20231204
  7. MABTHERA [Suspect]
     Active Substance: RITUXIMAB
     Dosage: 1 DOSAGE FORM, 1 TOTAL
     Route: 058
     Dates: start: 20231204, end: 20231204
  8. MABTHERA [Suspect]
     Active Substance: RITUXIMAB
     Dosage: 1 DOSAGE FORM, 1 TOTAL
     Dates: start: 20231204, end: 20231204
  9. VINCRISTINE SULFATE [Suspect]
     Active Substance: VINCRISTINE SULFATE
     Indication: B-cell lymphoma
     Dosage: 18 MILLIGRAM, 1 TOTAL
     Dates: start: 20231204, end: 20231204
  10. VINCRISTINE SULFATE [Suspect]
     Active Substance: VINCRISTINE SULFATE
     Dosage: 18 MILLIGRAM, 1 TOTAL
     Route: 042
     Dates: start: 20231204, end: 20231204
  11. VINCRISTINE SULFATE [Suspect]
     Active Substance: VINCRISTINE SULFATE
     Dosage: 18 MILLIGRAM, 1 TOTAL
     Route: 042
     Dates: start: 20231204, end: 20231204
  12. VINCRISTINE SULFATE [Suspect]
     Active Substance: VINCRISTINE SULFATE
     Dosage: 18 MILLIGRAM, 1 TOTAL
     Dates: start: 20231204, end: 20231204
  13. CYCLOPHOSPHAMIDE [Suspect]
     Active Substance: CYCLOPHOSPHAMIDE
     Indication: B-cell lymphoma
     Dosage: 1000 MILLIGRAM, 1 TOTAL
     Dates: start: 20231204, end: 20231204
  14. CYCLOPHOSPHAMIDE [Suspect]
     Active Substance: CYCLOPHOSPHAMIDE
     Dosage: 1000 MILLIGRAM, 1 TOTAL
     Route: 042
     Dates: start: 20231204, end: 20231204
  15. CYCLOPHOSPHAMIDE [Suspect]
     Active Substance: CYCLOPHOSPHAMIDE
     Dosage: 1000 MILLIGRAM, 1 TOTAL
     Route: 042
     Dates: start: 20231204, end: 20231204
  16. CYCLOPHOSPHAMIDE [Suspect]
     Active Substance: CYCLOPHOSPHAMIDE
     Dosage: 1000 MILLIGRAM, 1 TOTAL
     Dates: start: 20231204, end: 20231204
  17. DOXORUBICIN [Suspect]
     Active Substance: DOXORUBICIN
     Indication: B-cell lymphoma
     Dosage: 67 MILLIGRAM, 1 TOTAL
     Dates: start: 20231204, end: 20231204
  18. DOXORUBICIN [Suspect]
     Active Substance: DOXORUBICIN
     Dosage: 67 MILLIGRAM, 1 TOTAL
     Route: 042
     Dates: start: 20231204, end: 20231204
  19. DOXORUBICIN [Suspect]
     Active Substance: DOXORUBICIN
     Dosage: 67 MILLIGRAM, 1 TOTAL
     Route: 042
     Dates: start: 20231204, end: 20231204
  20. DOXORUBICIN [Suspect]
     Active Substance: DOXORUBICIN
     Dosage: 67 MILLIGRAM, 1 TOTAL
     Dates: start: 20231204, end: 20231204

REACTIONS (2)
  - Confusional state [Recovered/Resolved]
  - Aggression [Recovered/Resolved]

NARRATIVE: CASE EVENT DATE: 20231206
